FAERS Safety Report 4835876-7 (Version None)
Quarter: 2005Q4

REPORT INFORMATION
  Report Type: 
  Country: None (occurrence: None)
  Receive Date: 20051118
  Receipt Date: 20051103
  Transmission Date: 20060501
  Serious: Yes (Life-Threatening)
  Sender: FDA-Public Use
  Company Number: 2005S1010797

PATIENT
  Age: 49 Year
  Sex: Female

DRUGS (12)
  1. APOMORPHINE HYDROCHLORIDE (APOMORPHINE HYDROCHLORIDE)  (10 MG/ML) [Suspect]
     Indication: PARKINSON'S DISEASE
     Dosage: 5.5 MG/HR; SUBCUT
     Route: 058
     Dates: start: 20051013
  2. CABERGOLINE [Concomitant]
  3. CITALOPRAM HYDROBROMIDE [Concomitant]
  4. TILIDINE [Concomitant]
  5. MIRTAZAPINE [Concomitant]
  6. PARACETAMOL [Concomitant]
  7. ACETYLSALICYLIC ACID [Concomitant]
  8. LORAZEPAM [Concomitant]
  9. LEVODOPA/BENSERAZIDE HYDROCHLORIDE [Concomitant]
  10. CARBIDOPA AND LEVODOPA [Concomitant]
  11. TRIMIPRAMINE MALEATE [Concomitant]
  12. DOMPERIDONE [Concomitant]

REACTIONS (2)
  - PETECHIAE [None]
  - THROMBOCYTOPENIA [None]
